FAERS Safety Report 6188306-X (Version None)
Quarter: 2009Q2

REPORT INFORMATION
  Report Type: 
  Country: None (occurrence: None)
  Receive Date: 20090513
  Receipt Date: 20090507
  Transmission Date: 20091009
  Serious: Yes (Other)
  Sender: FDA-Public Use
  Company Number: JP-PFIZER INC-2009210818

PATIENT

DRUGS (3)
  1. METHYLPREDNISOLONE AND METHYLPREDNISOLONE ACETATE AND METHYLPREDNISOLO [Suspect]
     Dosage: 0.5 G, THREE TIMES A WEEK
  2. MIZORIBINE [Suspect]
     Dosage: 4 MG/KG, UNK
  3. ANTITHROMBOTIC AGENTS [Suspect]

REACTIONS (1)
  - ATRIAL FIBRILLATION [None]
